FAERS Safety Report 6694467-6 (Version None)
Quarter: 2010Q2

REPORT INFORMATION
  Report Type: 
  Country: None (occurrence: None)
  Receive Date: 20100423
  Receipt Date: 20100413
  Transmission Date: 20101027
  Serious: Yes (Hospitalization)
  Sender: FDA-Public Use
  Company Number: FR-PFIZER INC-2009245667

PATIENT
  Age: 63 Year
  Sex: Male
  Weight: 75 kg

DRUGS (2)
  1. SUTENT [Suspect]
     Indication: TRANSITIONAL CELL CARCINOMA
     Dosage: 50 MG, 2X/DAY
     Route: 048
     Dates: start: 20090610, end: 20090714
  2. AUGMENTIN '125' [Concomitant]
     Indication: URINARY TRACT INFECTION
     Dosage: UNK
     Dates: start: 20090721

REACTIONS (13)
  - ASTHENIA [None]
  - C-REACTIVE PROTEIN INCREASED [None]
  - GENERAL PHYSICAL HEALTH DETERIORATION [None]
  - HAEMOGLOBIN DECREASED [None]
  - HYPERTHERMIA [None]
  - HYPOKALAEMIA [None]
  - MALIGNANT NEOPLASM PROGRESSION [None]
  - METASTATIC CARCINOMA OF THE BLADDER [None]
  - NECK PAIN [None]
  - NEUTROPENIA [None]
  - PLATELET COUNT DECREASED [None]
  - PLEURAL EFFUSION [None]
  - SEROCONVERSION TEST POSITIVE [None]
